FAERS Safety Report 12137325 (Version 1)
Quarter: 2016Q1

REPORT INFORMATION
  Report Type: Spontaneous
  Country: US (occurrence: US)
  Receive Date: 20160302
  Receipt Date: 20160302
  Transmission Date: 20160526
  Serious: No
  Sender: FDA-Public Use
  Company Number: US-ACTAVIS-2015-27962

PATIENT
  Sex: Female
  Weight: 92.97 kg

DRUGS (1)
  1. OXYBUTYNIN (UNKNOWN) [Suspect]
     Active Substance: OXYBUTYNIN
     Indication: PRODUCT USED FOR UNKNOWN INDICATION
     Route: 065

REACTIONS (6)
  - Constipation [Unknown]
  - Pain [Unknown]
  - Thirst [Unknown]
  - Dysuria [Unknown]
  - Bowel movement irregularity [Unknown]
  - Dry throat [Unknown]
